FAERS Safety Report 17955634 (Version 3)
Quarter: 2020Q3

REPORT INFORMATION
  Report Type: Other
  Country: US (occurrence: US)
  Receive Date: 20200629
  Receipt Date: 20200728
  Transmission Date: 20201103
  Serious: Yes (Hospitalization)
  Sender: FDA-Public Use
  Company Number: US-ROCHE-2630437

PATIENT
  Sex: Male
  Weight: 59.9 kg

DRUGS (15)
  1. LINAGLIPTIN [Concomitant]
     Active Substance: LINAGLIPTIN
     Route: 048
  2. BACITRACIN. [Concomitant]
     Active Substance: BACITRACIN
     Dosage: APPLY 1/2 INCH RIBBON PER APPLICATION TO RIGHT INCISION FOR 1 WEEK
     Route: 065
  3. ERYTHROMYCIN. [Concomitant]
     Active Substance: ERYTHROMYCIN
     Dosage: APPLY 1/2 INCH RIBBON PER APPLICATION TO RIGHT INCISION FOR 1 WEEK, THEN TWICE A DAY FOR 1 WEEK
     Route: 065
  4. GLIMEPIRIDE. [Concomitant]
     Active Substance: GLIMEPIRIDE
  5. LISINOPRIL. [Concomitant]
     Active Substance: LISINOPRIL
     Route: 048
  6. PANTOPRAZOLE [Concomitant]
     Active Substance: PANTOPRAZOLE
     Route: 048
  7. INSULIN GLARGINE [Concomitant]
     Active Substance: INSULIN GLARGINE
     Dosage: INJECT 10 UNITS DAILY AT BED TIME
     Route: 058
  8. ACTEMRA [Suspect]
     Active Substance: TOCILIZUMAB
     Indication: GIANT CELL ARTERITIS
     Dosage: INJECT 162MG SUBCUTANEOUSLY EVERY WEEK
     Route: 058
  9. SULFAMETHOXAZOLE/TRIMETHOPRIM [Concomitant]
     Active Substance: SULFAMETHOXAZOLE\TRIMETHOPRIM
     Dosage: 800?160 MG; TAKE 1 TABLET EVERY MONDAY, WEDNESDAY AND FRIDAY
  10. ASPIRIN. [Concomitant]
     Active Substance: ASPIRIN
     Route: 048
  11. UBIDECARENONE [Concomitant]
     Active Substance: UBIDECARENONE
     Route: 048
  12. CHOLECALCIFEROL [Concomitant]
     Active Substance: CHOLECALCIFEROL
     Dosage: 2 TABLETS
     Route: 048
  13. PERFLUTREN [Concomitant]
     Active Substance: PERFLUTREN
  14. BIOTIN [Concomitant]
     Active Substance: BIOTIN
     Route: 048
  15. PREDNISONE. [Concomitant]
     Active Substance: PREDNISONE
     Route: 065

REACTIONS (1)
  - Rectal haemorrhage [Unknown]
